FAERS Safety Report 3771344 (Version 3)
Quarter: 2015Q2

REPORT INFORMATION
  Report Type: Spontaneous
  Country: JP (occurrence: JP)
  Receive Date: 20020306
  Receipt Date: 20150417
  Transmission Date: 20150821
  Serious: Yes (Life-Threatening, Hospitalization, Other)
  Sender: FDA-Public Use
  Company Number: PHBS2002JP01242

PATIENT
  Age: 26 Year
  Sex: Female
  Weight: 57 kg

DRUGS (10)
  1. GASTER [Concomitant]
     Active Substance: FAMOTIDINE
     Dosage: 20 MG/D
     Dates: start: 200108, end: 20020117
  2. BAKTAR [Concomitant]
     Active Substance: SULFAMETHOXAZOLE\TRIMETHOPRIM
  3. DIFLUCAN [Interacting]
     Active Substance: FLUCONAZOLE
     Dosage: 50 MG/D
     Dates: start: 200108, end: 20020213
  4. SELBEX [Concomitant]
     Active Substance: TEPRENONE
     Dates: start: 200108
  5. LASIX [Concomitant]
     Active Substance: FUROSEMIDE
     Dosage: 20 MG/DAY
     Route: 048
     Dates: start: 200112, end: 20020110
  6. PREDONINE [Concomitant]
     Active Substance: PREDNISOLONE\PREDNISOLONE ACETATE\PREDNISOLONE SODIUM SUCCINATE
     Dates: start: 200108
  7. GLIVEC [Suspect]
     Active Substance: IMATINIB MESYLATE
     Indication: BLAST CRISIS IN MYELOGENOUS LEUKAEMIA
     Dosage: 400 MG/DAY
     Route: 048
     Dates: start: 20011210, end: 20020110
  8. METHYCOBAL [Concomitant]
     Active Substance: METHYLCOBALAMIN
  9. ASPARA K [Concomitant]
     Active Substance: POTASSIUM ASPARTATE
     Dates: start: 20011210, end: 20020110
  10. GLIVEC [Interacting]
     Active Substance: IMATINIB MESYLATE
     Indication: CHRONIC MYELOID LEUKAEMIA
     Route: 048
     Dates: start: 20020131, end: 20020329

REACTIONS (12)
  - White blood cell count decreased [Recovered/Resolved]
  - Nausea [Not Recovered/Not Resolved]
  - Diarrhoea [Recovering/Resolving]
  - Face oedema [Not Recovered/Not Resolved]
  - Weight increased [Recovering/Resolving]
  - Anaemia [Not Recovered/Not Resolved]
  - Malaise [Not Recovered/Not Resolved]
  - Oedema [Not Recovered/Not Resolved]
  - Decreased appetite [Not Recovered/Not Resolved]
  - Drug interaction [None]
  - Agranulocytosis [Recovered/Resolved]
  - Decreased appetite [Not Recovered/Not Resolved]

NARRATIVE: CASE EVENT DATE: 20011217
